FAERS Safety Report 24825472 (Version 1)
Quarter: 2025Q1

REPORT INFORMATION
  Report Type: Spontaneous
  Country: CA (occurrence: CA)
  Receive Date: 20250109
  Receipt Date: 20250109
  Transmission Date: 20250408
  Serious: Yes (Life-Threatening, Hospitalization, Disabling, Other)
  Sender: PFIZER
  Company Number: CA-PFIZER INC-202500001735

PATIENT
  Age: 59 Year
  Sex: Female
  Weight: 98 kg

DRUGS (36)
  1. IBRANCE [Suspect]
     Active Substance: PALBOCICLIB
     Indication: Metastases to lymph nodes
     Route: 048
  2. IBRANCE [Suspect]
     Active Substance: PALBOCICLIB
     Indication: Metastases to bone
  3. IBRANCE [Suspect]
     Active Substance: PALBOCICLIB
     Indication: Invasive breast carcinoma
  4. EPIRUBICIN HYDROCHLORIDE [Suspect]
     Active Substance: EPIRUBICIN HYDROCHLORIDE
     Indication: Metastases to lymph nodes
     Route: 042
  5. EPIRUBICIN HYDROCHLORIDE [Suspect]
     Active Substance: EPIRUBICIN HYDROCHLORIDE
     Indication: Metastases to bone
  6. EPIRUBICIN HYDROCHLORIDE [Suspect]
     Active Substance: EPIRUBICIN HYDROCHLORIDE
     Indication: Invasive breast carcinoma
  7. ADRUCIL [Suspect]
     Active Substance: FLUOROURACIL
     Indication: Metastases to lymph nodes
     Route: 042
  8. ADRUCIL [Suspect]
     Active Substance: FLUOROURACIL
     Indication: Metastases to bone
  9. ADRUCIL [Suspect]
     Active Substance: FLUOROURACIL
     Indication: Invasive breast carcinoma
  10. CYTOXAN [Suspect]
     Active Substance: CYCLOPHOSPHAMIDE
     Indication: Metastases to lymph nodes
     Route: 042
  11. CYTOXAN [Suspect]
     Active Substance: CYCLOPHOSPHAMIDE
     Indication: Metastases to bone
  12. CYTOXAN [Suspect]
     Active Substance: CYCLOPHOSPHAMIDE
     Indication: Invasive breast carcinoma
  13. ENHERTU [Suspect]
     Active Substance: FAM-TRASTUZUMAB DERUXTECAN-NXKI
     Indication: Metastases to lymph nodes
     Route: 042
  14. ENHERTU [Suspect]
     Active Substance: FAM-TRASTUZUMAB DERUXTECAN-NXKI
     Indication: Metastases to bone
     Route: 042
  15. ENHERTU [Suspect]
     Active Substance: FAM-TRASTUZUMAB DERUXTECAN-NXKI
     Indication: Invasive breast carcinoma
     Route: 042
  16. TAXOL [Suspect]
     Active Substance: PACLITAXEL
     Indication: Metastases to lymph nodes
     Route: 042
  17. TAXOL [Suspect]
     Active Substance: PACLITAXEL
     Indication: Metastases to bone
  18. TAXOL [Suspect]
     Active Substance: PACLITAXEL
     Indication: Invasive breast carcinoma
  19. TAXOTERE [Suspect]
     Active Substance: DOCETAXEL
     Indication: Metastases to lymph nodes
     Route: 042
  20. TAXOTERE [Suspect]
     Active Substance: DOCETAXEL
     Indication: Metastases to bone
  21. TAXOTERE [Suspect]
     Active Substance: DOCETAXEL
     Indication: Invasive breast carcinoma
  22. APIXABAN [Concomitant]
     Active Substance: APIXABAN
  23. CHOLECALCIFEROL [Concomitant]
     Active Substance: CHOLECALCIFEROL
  24. FEMARA [Concomitant]
     Active Substance: LETROZOLE
  25. GABAPENTIN [Concomitant]
     Active Substance: GABAPENTIN
  26. HYDROMORPHONE [Concomitant]
     Active Substance: HYDROMORPHONE
  27. LEVOTHYROXINE [Concomitant]
     Active Substance: LEVOTHYROXINE
  28. LORAZEPAM [Concomitant]
     Active Substance: LORAZEPAM
     Route: 065
  29. METOCLOPRAMIDE [Concomitant]
     Active Substance: METOCLOPRAMIDE
  30. MINERALS\VITAMINS [Concomitant]
     Active Substance: MINERALS\VITAMINS
  31. NAVELBINE [Concomitant]
     Active Substance: VINORELBINE TARTRATE
  32. TAMOXIFEN CITRATE [Concomitant]
     Active Substance: TAMOXIFEN CITRATE
  33. NYSTATIN [Concomitant]
     Active Substance: NYSTATIN
  34. ONDANSETRON [Concomitant]
     Active Substance: ONDANSETRON
  35. POTASSIUM CHLORIDE [Concomitant]
     Active Substance: POTASSIUM CHLORIDE
  36. PSYLLIUM HUSK [Concomitant]
     Active Substance: PSYLLIUM HUSK

REACTIONS (6)
  - Bundle branch block left [Not Recovered/Not Resolved]
  - Cardiac failure congestive [Not Recovered/Not Resolved]
  - Catheterisation cardiac [Not Recovered/Not Resolved]
  - Dilated cardiomyopathy [Not Recovered/Not Resolved]
  - Ejection fraction decreased [Not Recovered/Not Resolved]
  - Left ventricular dysfunction [Not Recovered/Not Resolved]
